FAERS Safety Report 5772769-5 (Version None)
Quarter: 2008Q2

REPORT INFORMATION
  Report Type: 
  Country: None (occurrence: None)
  Receive Date: 20080613
  Receipt Date: 20080602
  Transmission Date: 20081010
  Serious: Yes (Hospitalization)
  Sender: FDA-Public Use
  Company Number: FR-PFIZER INC-2008046853

PATIENT
  Sex: Female

DRUGS (2)
  1. XANAX [Suspect]
     Route: 048
  2. EFFEXOR [Suspect]
     Route: 048

REACTIONS (1)
  - POISONING DELIBERATE [None]
